FAERS Safety Report 9225084 (Version 1)
Quarter: 2013Q2

REPORT INFORMATION
  Report Type: Spontaneous
  Country: US (occurrence: None)
  Receive Date: 20130410
  Receipt Date: 20130410
  Transmission Date: 20140414
  Serious: Yes (Other)
  Sender: FDA-Public Use
  Company Number: None

PATIENT
  Age: 59 Year
  Sex: Male
  Weight: 95.26 kg

DRUGS (1)
  1. VYDOX [Suspect]
     Indication: ERECTILE DYSFUNCTION
     Dosage: 2 PILLS ONCE A DAY PO
     Dates: start: 20130223, end: 20130225

REACTIONS (6)
  - Dyspepsia [None]
  - Headache [None]
  - Nausea [None]
  - Chills [None]
  - Palpitations [None]
  - Dizziness [None]
